FAERS Safety Report 18501758 (Version 1)
Quarter: 2020Q4

REPORT INFORMATION
  Report Type: Spontaneous
  Country: CA (occurrence: CA)
  Receive Date: 20201113
  Receipt Date: 20201113
  Transmission Date: 20210114
  Serious: Yes (Other)
  Sender: FDA-Public Use
  Company Number: CA-JNJFOC-20201108067

PATIENT
  Age: 25 Year
  Sex: Female

DRUGS (1)
  1. INFLIXIMAB, RECOMBINANT [Suspect]
     Active Substance: INFLIXIMAB
     Indication: PRODUCT USED FOR UNKNOWN INDICATION
     Route: 042

REACTIONS (10)
  - Impaired healing [Unknown]
  - Ear infection [Unknown]
  - Scar [Unknown]
  - Weight fluctuation [Unknown]
  - Rhinitis [Unknown]
  - Contusion [Unknown]
  - Immunosuppression [Unknown]
  - Cystitis [Unknown]
  - Off label use [Unknown]
  - Intentional product use issue [Unknown]
